FAERS Safety Report 4455908-8 (Version None)
Quarter: 2004Q3

REPORT INFORMATION
  Report Type: 
  Country: None (occurrence: None)
  Receive Date: 20040920
  Receipt Date: 20040902
  Transmission Date: 20050211
  Serious: Yes (Hospitalization)
  Sender: FDA-Public Use
  Company Number: 2004-DE-04673GD

PATIENT
  Age: 43 Year
  Sex: Female

DRUGS (5)
  1. METHOTREXATE [Suspect]
     Indication: RHEUMATOID ARTHRITIS
  2. LEFLUNOMIDE [Suspect]
     Indication: RHEUMATOID ARTHRITIS
  3. BUDESONIDE (BUDESONIDE) (BUDESONIDE) [Concomitant]
  4. ESTROGEN (ESTROGENS) [Concomitant]
  5. ALBUTEROL [Concomitant]

REACTIONS (2)
  - PANCYTOPENIA [None]
  - PNEUMONIA [None]
